FAERS Safety Report 26013446 (Version 1)
Quarter: 2025Q4

REPORT INFORMATION
  Report Type: Spontaneous
  Country: US (occurrence: US)
  Receive Date: 20251107
  Receipt Date: 20251107
  Transmission Date: 20260118
  Serious: Yes (Other)
  Sender: JAZZ
  Company Number: US-JAZZ PHARMACEUTICALS-2024-US-019684

PATIENT
  Age: 8 Year
  Sex: Male

DRUGS (16)
  1. RYLAZE [Suspect]
     Active Substance: ASPARAGINASE ERWINIA CHRYSANTHEMI (RECOMBINANT)-RYWN
     Indication: B-cell type acute leukaemia
  2. RYLAZE [Suspect]
     Active Substance: ASPARAGINASE ERWINIA CHRYSANTHEMI (RECOMBINANT)-RYWN
     Indication: B precursor type acute leukaemia
  3. VINCRISTINE [Suspect]
     Active Substance: VINCRISTINE
     Indication: B-cell type acute leukaemia
  4. VINCRISTINE [Suspect]
     Active Substance: VINCRISTINE
     Indication: B precursor type acute leukaemia
  5. DOXORUBICIN [Suspect]
     Active Substance: DOXORUBICIN
     Indication: B-cell type acute leukaemia
  6. DOXORUBICIN [Suspect]
     Active Substance: DOXORUBICIN
     Indication: B precursor type acute leukaemia
  7. DEXRAZOXANE [Suspect]
     Active Substance: DEXRAZOXANE
     Indication: B-cell type acute leukaemia
  8. DEXRAZOXANE [Suspect]
     Active Substance: DEXRAZOXANE
     Indication: B precursor type acute leukaemia
  9. VENETOCLAX [Suspect]
     Active Substance: VENETOCLAX
     Indication: B-cell type acute leukaemia
  10. VENETOCLAX [Suspect]
     Active Substance: VENETOCLAX
     Indication: B precursor type acute leukaemia
  11. METHOTREXATE [Suspect]
     Active Substance: METHOTREXATE
     Indication: B-cell type acute leukaemia
  12. METHOTREXATE [Suspect]
     Active Substance: METHOTREXATE
     Indication: B precursor type acute leukaemia
  13. HYDROCORTISONE [Suspect]
     Active Substance: HYDROCORTISONE
     Indication: B-cell type acute leukaemia
  14. HYDROCORTISONE [Suspect]
     Active Substance: HYDROCORTISONE
     Indication: B precursor type acute leukaemia
  15. CYTARABINE [Suspect]
     Active Substance: CYTARABINE
     Indication: B-cell type acute leukaemia
  16. CYTARABINE [Suspect]
     Active Substance: CYTARABINE
     Indication: B precursor type acute leukaemia

REACTIONS (1)
  - Febrile neutropenia [Unknown]
